FAERS Safety Report 5947000-8 (Version None)
Quarter: 2008Q4

REPORT INFORMATION
  Report Type: 
  Country: None (occurrence: None)
  Receive Date: 20081107
  Receipt Date: 20081107
  Transmission Date: 20090506
  Serious: No
  Sender: FDA-Public Use
  Company Number: None

PATIENT
  Age: 19 Year
  Sex: Male
  Weight: 102.0593 kg

DRUGS (3)
  1. FLUVOXAMINE MALEATE [Suspect]
     Indication: OBSESSIVE-COMPULSIVE DISORDER
     Dosage: 300 MG AT BEDTIME PO
     Route: 048
     Dates: start: 20081020, end: 20081103
  2. WELLBUTRIN SR [Concomitant]
  3. FLUVOXAMINE MALEATE [Suspect]

REACTIONS (2)
  - OBSESSIVE-COMPULSIVE DISORDER [None]
  - PRODUCT QUALITY ISSUE [None]
